FAERS Safety Report 5149616-8 (Version None)
Quarter: 2006Q4

REPORT INFORMATION
  Report Type: 
  Country: None (occurrence: None)
  Receive Date: 20061113
  Receipt Date: 20060614
  Transmission Date: 20070319
  Serious: No
  Sender: FDA-Public Use
  Company Number: US-GLAXOSMITHKLINE-A0609001A

PATIENT
  Age: 85 Year
  Sex: Female

DRUGS (5)
  1. COREG [Suspect]
     Indication: HYPERTENSION
     Dosage: 6.25MG TWICE PER DAY
     Route: 048
     Dates: start: 20060602
  2. NAPROXEN [Concomitant]
  3. DIAZIDE [Concomitant]
  4. ADALAT CC [Concomitant]
  5. ACTONEL [Concomitant]

REACTIONS (1)
  - DIARRHOEA [None]
